FAERS Safety Report 8277365-6 (Version None)
Quarter: 2012Q2

REPORT INFORMATION
  Report Type: 
  Country: None (occurrence: None)
  Receive Date: 20120412
  Receipt Date: 20120403
  Transmission Date: 20120825
  Serious: Yes (Hospitalization)
  Sender: FDA-Public Use
  Company Number: DE-ASTRAZENECA-2012SE22039

PATIENT
  Age: 33 Year
  Sex: Male

DRUGS (3)
  1. RISPERIDONE [Suspect]
     Indication: SCHIZOPHRENIA
     Dosage: ONCE A WEEK
     Route: 030
  2. SEROQUEL [Suspect]
     Indication: SCHIZOPHRENIA
     Route: 048
     Dates: start: 20070101, end: 20111101
  3. SEROQUEL [Suspect]
     Route: 048
     Dates: start: 20111101

REACTIONS (7)
  - SCHIZOPHRENIA [None]
  - TREMOR [None]
  - DYSPNOEA [None]
  - INTENTIONAL DRUG MISUSE [None]
  - MOVEMENT DISORDER [None]
  - PALPITATIONS [None]
  - ASTHENIA [None]
